FAERS Safety Report 8951637 (Version 1)
Quarter: 2012Q4

REPORT INFORMATION
  Report Type: 
  Country: SE (occurrence: SE)
  Receive Date: 20121204
  Receipt Date: 20121204
  Transmission Date: 20130627
  Serious: Yes (Hospitalization, Disabling)
  Sender: FDA-Public Use
  Company Number: SE-ROCHE-1164062

PATIENT
  Sex: Female

DRUGS (8)
  1. ROACTEMRA [Suspect]
     Indication: PRODUCT USED FOR UNKNOWN INDICATION
     Route: 065
     Dates: start: 20101111, end: 20110110
  2. OMEPRAZOL [Concomitant]
  3. ALVEDON [Concomitant]
     Route: 065
  4. PROGYNON DEPOT [Concomitant]
     Route: 065
  5. CITALON [Concomitant]
     Dosage: 500mg/30mg
     Route: 065
  6. TRIMETOPRIM [Concomitant]
  7. KALCIPOS [Concomitant]
     Route: 065
  8. PREDNISOLON [Concomitant]

REACTIONS (3)
  - Dizziness [Not Recovered/Not Resolved]
  - Headache [Not Recovered/Not Resolved]
  - Sudden hearing loss [Not Recovered/Not Resolved]
